FAERS Safety Report 5036209-6 (Version None)
Quarter: 2006Q2

REPORT INFORMATION
  Report Type: 
  Country: None (occurrence: None)
  Receive Date: 20060601
  Receipt Date: 20060202
  Transmission Date: 20061013
  Serious: No
  Sender: FDA-Public Use
  Company Number: US200602000162

PATIENT
  Age: 76 Year
  Sex: Male

DRUGS (2)
  1. CYMBALTA [Suspect]
     Indication: NEURALGIA
     Dosage: 60 MG, ORAL
     Route: 048
  2. GABAPENTIN [Concomitant]

REACTIONS (1)
  - CHEST PAIN [None]
